FAERS Safety Report 6904690 (Version 5)
Quarter: 2018Q2

REPORT INFORMATION
  Report Type: Report from Study
  Country: DE (occurrence: DE)
  Receive Date: 20090209
  Receipt Date: 20180413
  Transmission Date: 20180711
  Serious: Yes (Death, Other)
  Sender: FDA-Public Use
  Company Number: DE-PFIZER INC-2009162017

PATIENT
  Age: 64 Year
  Sex: Female
  Weight: 52 kg

DRUGS (4)
  1. IRINOTECAN HCL [Suspect]
     Active Substance: IRINOTECAN HYDROCHLORIDE
     Indication: COLORECTAL CANCER METASTATIC
     Dosage: 80 MG/M2, 1X/WEEK
     Route: 042
     Dates: start: 20080814
  2. ERBITUX [Suspect]
     Active Substance: CETUXIMAB
     Dosage: 250 MG/M2, 1X/WEEK
     Route: 042
     Dates: start: 20080820, end: 20080924
  3. ERBITUX [Suspect]
     Active Substance: CETUXIMAB
     Indication: COLORECTAL CANCER METASTATIC
     Dosage: 500 MG/M2, ONCE
     Route: 042
     Dates: start: 20080814, end: 20080814
  4. ERBITUX [Suspect]
     Active Substance: CETUXIMAB
     Dosage: 250 MG/M2
     Route: 042
     Dates: start: 20080814, end: 20080925

REACTIONS (2)
  - Cerebral haemorrhage [Fatal]
  - Pruritus [Fatal]

NARRATIVE: CASE EVENT DATE: 20080828
